FAERS Safety Report 9247647 (Version 1)
Quarter: 2013Q1

REPORT INFORMATION
  Report Type: Spontaneous
  Country: US (occurrence: None)
  Receive Date: 20130305
  Receipt Date: 20130305
  Transmission Date: 20140127
  Serious: Yes (Hospitalization)
  Sender: FDA-Public Use
  Company Number: 163-21880-12062313

PATIENT
  Age: 58 Year
  Sex: Female
  Weight: 49.9 kg

DRUGS (7)
  1. REVLIMID [Suspect]
     Indication: WALDENSTROM^S MACROGLOBULINAEMIA
     Dosage: 1 IN 1 D
     Route: 048
     Dates: start: 20120611
  2. OFATUMUMAB [Suspect]
     Indication: WALDENSTROM^S MACROGLOBULINAEMIA
     Route: 042
     Dates: start: 20120606
  3. NIFEDIPINE [Concomitant]
  4. BOSENTAN [Concomitant]
  5. THYROID [Concomitant]
  6. VITAMIN SUPPLEMENTS (VITAMINS NOS) [Concomitant]
  7. ACTIVELLA (OESTRANORM) [Concomitant]

REACTIONS (1)
  - Gastrointestinal haemorrhage [None]
